FAERS Safety Report 17537803 (Version 2)
Quarter: 2020Q1

REPORT INFORMATION
  Report Type: Spontaneous
  Country: DE (occurrence: DE)
  Receive Date: 20200313
  Receipt Date: 20200316
  Transmission Date: 20200409
  Serious: Yes (Other)
  Sender: FDA-Public Use
  Company Number: DE-PFIZER INC-2020105314

PATIENT
  Sex: Male
  Weight: 3 kg

DRUGS (1)
  1. CYTOTEC [Suspect]
     Active Substance: MISOPROSTOL
     Indication: LABOUR INDUCTION
     Dosage: ONE 25 MICROGRAM TABLET. THEN 2 TABLETS WITH A TOTAL OF 50 MICROGRAMS.
     Dates: start: 20191029, end: 20191029

REACTIONS (2)
  - Foetal exposure during delivery [Unknown]
  - Foetal heart rate abnormal [Recovered/Resolved]

NARRATIVE: CASE EVENT DATE: 20191029
